FAERS Safety Report 5241641-1 (Version None)
Quarter: 2007Q1

REPORT INFORMATION
  Report Type: 
  Country: None (occurrence: None)
  Receive Date: 20070220
  Receipt Date: 20070209
  Transmission Date: 20070707
  Serious: Yes (Life-Threatening, Hospitalization)
  Sender: FDA-Public Use
  Company Number: CA-ROCHE-479472

PATIENT
  Age: 45 Year
  Sex: Male
  Weight: 114 kg

DRUGS (7)
  1. VESANOID [Suspect]
     Route: 048
     Dates: start: 20061127, end: 20070112
  2. VESANOID [Suspect]
     Route: 048
     Dates: start: 20070129
  3. IDAMYCIN [Concomitant]
     Dosage: FORM REPORTED AS VIAL.
  4. ACYCLOVIR [Concomitant]
     Route: 042
     Dates: start: 20061208
  5. ACYCLOVIR [Concomitant]
     Route: 048
     Dates: end: 20070129
  6. VORICONAZOLE [Concomitant]
     Route: 042
     Dates: start: 20061210
  7. VORICONAZOLE [Concomitant]
     Route: 048
     Dates: end: 20070118

REACTIONS (2)
  - LEUKOENCEPHALOPATHY [None]
  - PROGRESSIVE MULTIFOCAL LEUKOENCEPHALOPATHY [None]
